FAERS Safety Report 19098604 (Version 1)
Quarter: 2021Q2

REPORT INFORMATION
  Report Type: Report from Study
  Country: None (occurrence: CA)
  Receive Date: 20210406
  Receipt Date: 20210406
  Transmission Date: 20210717
  Serious: Yes (Other)
  Sender: FDA-Public Use
  Company Number: CA-JACOBUS PHARMACEUTICAL COMPANY, INC.-2108965

PATIENT
  Sex: Female

DRUGS (5)
  1. IMMUNOGLOBULIN (HUMAN) [Concomitant]
  2. PENICILLIN V POTASIUM [Concomitant]
     Active Substance: PENICILLIN V POTASSIUM
  3. RITUXAN [Concomitant]
     Active Substance: RITUXIMAB
  4. DAPSONE. [Suspect]
     Active Substance: DAPSONE
  5. NABILONE [Concomitant]
     Active Substance: NABILONE

REACTIONS (2)
  - Drug hypersensitivity [Unknown]
  - Meningitis aseptic [Unknown]
